FAERS Safety Report 14271853 (Version 2)
Quarter: 2018Q4

REPORT INFORMATION
  Report Type: Report from Study
  Country: US (occurrence: US)
  Receive Date: 20171212
  Receipt Date: 20181003
  Transmission Date: 20190204
  Serious: Yes (Other)
  Sender: FDA-Public Use
  Company Number: US-ROCHE-1868082

PATIENT
  Age: 0 Day
  Sex: Male
  Weight: 1.42 kg

DRUGS (15)
  1. OCRELIZUMAB. [Suspect]
     Active Substance: OCRELIZUMAB
     Route: 064
     Dates: start: 20140617, end: 20140617
  2. HEPATITIS B VACCINE [Concomitant]
     Active Substance: HEPATITIS B VIRUS VACCINE
     Route: 065
     Dates: start: 20170222
  3. OCRELIZUMAB. [Suspect]
     Active Substance: OCRELIZUMAB
     Route: 064
     Dates: start: 20121218, end: 20121218
  4. HEPATITIS B VACCINE [Concomitant]
     Active Substance: HEPATITIS B VIRUS VACCINE
     Route: 065
     Dates: start: 20160805
  5. OCRELIZUMAB. [Suspect]
     Active Substance: OCRELIZUMAB
     Route: 064
     Dates: start: 20120724, end: 20120724
  6. OCRELIZUMAB. [Suspect]
     Active Substance: OCRELIZUMAB
     Route: 064
     Dates: start: 20141118, end: 20141118
  7. OCRELIZUMAB. [Suspect]
     Active Substance: OCRELIZUMAB
     Route: 064
     Dates: start: 20151020, end: 20151020
  8. HEPATITIS B VACCINE [Concomitant]
     Active Substance: HEPATITIS B VIRUS VACCINE
     Route: 065
     Dates: start: 20160921
  9. OCRELIZUMAB. [Suspect]
     Active Substance: OCRELIZUMAB
     Route: 064
     Dates: start: 20131216, end: 20131216
  10. OCRELIZUMAB. [Suspect]
     Active Substance: OCRELIZUMAB
     Indication: RELAPSING-REMITTING MULTIPLE SCLEROSIS
     Route: 064
     Dates: start: 20140603, end: 20140603
  11. OCRELIZUMAB. [Suspect]
     Active Substance: OCRELIZUMAB
     Indication: RELAPSING-REMITTING MULTIPLE SCLEROSIS
     Route: 064
     Dates: start: 20120710, end: 20120710
  12. OCRELIZUMAB. [Suspect]
     Active Substance: OCRELIZUMAB
     Route: 064
     Dates: start: 20130715, end: 20130715
  13. PLACEBO [Suspect]
     Active Substance: UNSPECIFIED INGREDIENT
     Indication: RELAPSING-REMITTING MULTIPLE SCLEROSIS
     Route: 064
     Dates: start: 20121005, end: 20140602
  14. OCRELIZUMAB. [Suspect]
     Active Substance: OCRELIZUMAB
     Route: 064
     Dates: start: 20150513, end: 20150513
  15. HEPATITIS B VACCINE [Concomitant]
     Active Substance: HEPATITIS B VIRUS VACCINE
     Route: 065
     Dates: start: 20161011

REACTIONS (7)
  - Respiratory distress [Unknown]
  - Anaemia [Unknown]
  - Foetal exposure during pregnancy [Unknown]
  - Premature baby [Unknown]
  - Bradycardia [Unknown]
  - Body temperature fluctuation [Unknown]
  - Poor feeding infant [Unknown]

NARRATIVE: CASE EVENT DATE: 20160805
